FAERS Safety Report 8443931-8 (Version None)
Quarter: 2012Q2

REPORT INFORMATION
  Report Type: 
  Country: None (occurrence: None)
  Receive Date: 20120611
  Receipt Date: 20120606
  Transmission Date: 20120825
  Serious: Yes (Hospitalization, Disabling)
  Sender: FDA-Public Use
  Company Number: 2011SP048235

PATIENT
  Age: 32 Year
  Sex: Female
  Weight: 92.9874 kg

DRUGS (5)
  1. HYDROCHLOROTHIAZIDE [Concomitant]
  2. K-TAB [Concomitant]
  3. MOTRIN [Concomitant]
  4. NASACORT AQ [Concomitant]
  5. NUVARING [Suspect]
     Indication: CONTRACEPTION
     Dates: start: 20090501, end: 20091130

REACTIONS (15)
  - PULMONARY EMBOLISM [None]
  - PULMONARY INFARCTION [None]
  - PAIN IN EXTREMITY [None]
  - DEEP VEIN THROMBOSIS [None]
  - PREGNANCY WITH CONTRACEPTIVE DEVICE [None]
  - DEFICIENCY ANAEMIA [None]
  - PARAESTHESIA [None]
  - IMPAIRED WORK ABILITY [None]
  - HYPOKALAEMIA [None]
  - LOBAR PNEUMONIA [None]
  - ABORTION SPONTANEOUS [None]
  - MUSCLE TIGHTNESS [None]
  - DEVICE DISLOCATION [None]
  - MUSCLE SPASMS [None]
  - MATERNAL EXPOSURE DURING PREGNANCY [None]
